FAERS Safety Report 15196468 (Version 16)
Quarter: 2021Q4

REPORT INFORMATION
  Report Type: Report from Study
  Country: US (occurrence: US)
  Receive Date: 20180725
  Receipt Date: 20211223
  Transmission Date: 20220303
  Serious: Yes (Hospitalization)
  Sender: FDA-Public Use
  Company Number: US-KITE PHARMA, INC.-2018KITE000080

PATIENT
  Age: 66 Year
  Sex: Female
  Weight: 45 kg

DRUGS (12)
  1. AXICABTAGENE CILOLEUCEL [Suspect]
     Active Substance: AXICABTAGENE CILOLEUCEL
     Indication: Diffuse large B-cell lymphoma refractory
     Dosage: 68 ML, ONCE
     Route: 042
     Dates: start: 20180501, end: 20180501
  2. CYCLOPHOSPHAMIDE [Suspect]
     Active Substance: CYCLOPHOSPHAMIDE
     Indication: Bone marrow conditioning regimen
     Dosage: 500 MG/M2, QD
     Route: 042
     Dates: start: 20180426, end: 20180428
  3. FLUDARABINE [Suspect]
     Active Substance: FLUDARABINE PHOSPHATE
     Indication: Bone marrow conditioning regimen
     Dosage: 30 MG/M2, QD
     Route: 042
     Dates: start: 20180426, end: 20180428
  4. KEPPRA [Concomitant]
     Active Substance: LEVETIRACETAM
  5. LEVOFLOXACIN [Concomitant]
     Active Substance: LEVOFLOXACIN
     Dosage: 750 MG, QD
     Route: 048
     Dates: start: 20180614, end: 20180710
  6. LEVOFLOXACIN [Concomitant]
     Active Substance: LEVOFLOXACIN
     Dosage: 750 MG, QD
     Route: 048
     Dates: start: 20180726, end: 20180729
  7. AZITHROMYCIN [Concomitant]
     Active Substance: AZITHROMYCIN
     Dosage: 500 MG, QD
     Route: 048
     Dates: start: 20180718, end: 20180726
  8. OXYGEN [Concomitant]
     Active Substance: OXYGEN
     Dosage: 2,L/MIN,AS NECESSARY
     Route: 055
     Dates: start: 20180718, end: 20180724
  9. DOCUSATE SODIUM [Concomitant]
     Active Substance: DOCUSATE SODIUM
  10. PREDNISOLONE ACETATE [Concomitant]
     Active Substance: PREDNISOLONE ACETATE
  11. FLORINEF ACETATE [Concomitant]
     Active Substance: FLUDROCORTISONE ACETATE
  12. VITAMIN B1 [Suspect]
     Active Substance: THIAMINE HYDROCHLORIDE

REACTIONS (20)
  - Pneumonia staphylococcal [Recovered/Resolved]
  - Cytomegalovirus infection [Recovered/Resolved]
  - Rhinovirus infection [Recovered/Resolved]
  - Neutrophil count decreased [Recovered/Resolved]
  - Upper respiratory tract infection [Recovered/Resolved]
  - Cytokine release syndrome [Recovered/Resolved]
  - Troponin I increased [Recovered/Resolved]
  - Hypotension [Recovered/Resolved]
  - Neutropenia [Recovered/Resolved]
  - Pyrexia [Recovered/Resolved]
  - Pyrexia [Recovered/Resolved]
  - Neutropenia [Recovered/Resolved]
  - Pyrexia [Recovered/Resolved]
  - Neutropenia [Recovered/Resolved]
  - Pneumonia [Recovered/Resolved]
  - Pneumonia [Recovered/Resolved]
  - Pneumonia [Recovered/Resolved]
  - Subdural haematoma [Recovered/Resolved]
  - Hypercalcaemia [Recovered/Resolved]
  - Confusional state [Recovered/Resolved]

NARRATIVE: CASE EVENT DATE: 20180405
